FAERS Safety Report 25485616 (Version 2)
Quarter: 2025Q2

REPORT INFORMATION
  Report Type: Spontaneous
  Country: US (occurrence: US)
  Receive Date: 20250626
  Receipt Date: 20250627
  Transmission Date: 20250717
  Serious: No
  Sender: PFIZER
  Company Number: US-PFIZER INC-202500128626

PATIENT
  Age: 22 Year
  Sex: Female

DRUGS (4)
  1. LITFULO [Suspect]
     Active Substance: RITLECITINIB TOSYLATE
     Indication: Alopecia areata
     Dosage: 50 MG, DAILY
     Route: 048
     Dates: start: 20231004
  2. CLOBETASOL [Concomitant]
     Active Substance: CLOBETASOL
  3. CEPHALEXIN [Concomitant]
     Active Substance: CEPHALEXIN
  4. CLINDAMYCIN [Concomitant]
     Active Substance: CLINDAMYCIN

REACTIONS (2)
  - Infection [Not Recovered/Not Resolved]
  - Product dose omission issue [Unknown]
